FAERS Safety Report 18492913 (Version 1)
Quarter: 2020Q4

REPORT INFORMATION
  Report Type: Other
  Country: DE (occurrence: DE)
  Receive Date: 20201112
  Receipt Date: 20201112
  Transmission Date: 20210114
  Serious: Yes (Hospitalization, Other)
  Sender: FDA-Public Use
  Company Number: DE-ROCHE-2355575

PATIENT
  Age: 31 Year
  Sex: Female

DRUGS (8)
  1. CORTISONE [Suspect]
     Active Substance: CORTISONE
     Indication: PREMEDICATION
     Route: 065
  2. OCREVUS [Suspect]
     Active Substance: OCRELIZUMAB
     Indication: RELAPSING-REMITTING MULTIPLE SCLEROSIS
     Route: 042
     Dates: start: 20190702
  3. LEVODOPA [Concomitant]
     Active Substance: LEVODOPA
     Dosage: 100 MG/ 25 MG
     Route: 065
  4. IBUPROFEN. [Concomitant]
     Active Substance: IBUPROFEN
  5. OCREVUS [Suspect]
     Active Substance: OCRELIZUMAB
     Dosage: 3RD DOSE: INTRAVENOUS (NOT OTHERWISE SPECIFIED) 600 MG.?NEXT DOSE WAS RECEIVED ON 14/MAY/2020 AND 13
     Route: 042
     Dates: start: 20190716
  6. ATTEMPTA [Concomitant]
     Indication: CONTRACEPTION
  7. OCREVUS [Suspect]
     Active Substance: OCRELIZUMAB
     Dosage: 3RD DOSE: INTRAVENOUS (NOT OTHERWISE SPECIFIED) 600 MG.?NEXT DOSE WAS RECEIVED ON 14/MAY/2020 AND 13
     Route: 042
     Dates: start: 20200514
  8. OCREVUS [Suspect]
     Active Substance: OCRELIZUMAB
     Route: 042
     Dates: start: 20201013

REACTIONS (7)
  - Fatigue [Recovered/Resolved]
  - Multiple sclerosis relapse [Recovering/Resolving]
  - Joint swelling [Recovered/Resolved]
  - Throat irritation [Recovered/Resolved]
  - Urinary tract infection bacterial [Recovered/Resolved]
  - Agitation [Recovered/Resolved]
  - Fatigue [Recovered/Resolved]

NARRATIVE: CASE EVENT DATE: 20190702
